FAERS Safety Report 7203654-X (Version None)
Quarter: 2010Q4

REPORT INFORMATION
  Report Type: 
  Country: None (occurrence: None)
  Receive Date: 20101228
  Receipt Date: 20101228
  Transmission Date: 20110411
  Serious: Yes (Life-Threatening)
  Sender: FDA-Public Use
  Company Number: None

PATIENT
  Age: 46 Year
  Sex: Female
  Weight: 81.6475 kg

DRUGS (1)
  1. DOXYCYCLINE HYCLATE [Suspect]
     Dosage: 1 CAP TWICE DAILY PO
     Route: 048

REACTIONS (2)
  - BLOOD GLUCOSE DECREASED [None]
  - PRODUCT LABEL ISSUE [None]
